FAERS Safety Report 14026671 (Version 4)
Quarter: 2017Q4

REPORT INFORMATION
  Report Type: Report from Study
  Country: US (occurrence: US)
  Receive Date: 20170929
  Receipt Date: 20171129
  Transmission Date: 20180321
  Serious: Yes (Death, Hospitalization)
  Sender: FDA-Public Use
  Company Number: US-VIFOR (INTERNATIONAL) INC.-VIT-2017-09871

PATIENT
  Sex: Male

DRUGS (29)
  1. RANEXA [Concomitant]
     Active Substance: RANOLAZINE
     Route: 048
     Dates: end: 20170926
  2. LASIX [Concomitant]
     Active Substance: FUROSEMIDE
     Route: 048
     Dates: end: 20170926
  3. INSTA-GLUCOSE [Concomitant]
     Active Substance: DEXTROSE
     Dosage: ADMINISTER 1 TUBE ORAL IF CBG LESS THAN 70 MG/DL AND PATIENT UNRESPONSIVE
     Route: 048
  4. MEGACE [Concomitant]
     Active Substance: MEGESTROL ACETATE
     Dosage: 400MG/10ML
     Route: 048
     Dates: end: 20170926
  5. MIRALAX [Concomitant]
     Active Substance: POLYETHYLENE GLYCOL 3350
     Indication: CONSTIPATION
     Route: 048
  6. ZANTAC [Concomitant]
     Active Substance: RANITIDINE HYDROCHLORIDE
     Route: 048
     Dates: end: 20170926
  7. VELTASSA [Suspect]
     Active Substance: PATIROMER
     Route: 048
     Dates: start: 201710
  8. CRESTOR [Concomitant]
     Active Substance: ROSUVASTATIN CALCIUM
     Route: 048
     Dates: end: 20170926
  9. IMODIUM [Concomitant]
     Active Substance: LOPERAMIDE HYDROCHLORIDE
     Indication: DIARRHOEA
     Dosage: 2 TABS AFTER FIRST LOOSE STOOL AND THEN 1 TAB AFTER EACH LOOSE STOOL NOT T EXCEED 8 TABS PER DAY
     Route: 048
  10. MAGNESIUM HYDROXIDE. [Concomitant]
     Active Substance: MAGNESIUM HYDROXIDE
     Indication: CONSTIPATION
     Dosage: 400 MG/5ML
     Route: 048
  11. VELTASSA [Suspect]
     Active Substance: PATIROMER
     Indication: HYPERKALAEMIA
     Route: 048
     Dates: start: 20170726
  12. GLUCAGON. [Concomitant]
     Active Substance: GLUCAGON
     Dates: end: 2017
  13. TYLENOL [Concomitant]
     Active Substance: ACETAMINOPHEN
     Indication: PAIN
     Route: 048
  14. MAALOX ANTACID [Concomitant]
     Active Substance: ALUMINUM HYDROXIDE\DIMETHICONE\MAGNESIUM HYDROXIDE
     Dosage: 200-200-20MG/5 ML. NOTIFY MD IF 4 DOSES OR MORE TAKEN IN 24 HR
     Route: 048
  15. DULCOLAX NOS [Concomitant]
     Active Substance: BISACODYL OR DOCUSATE SODIUM
     Indication: CONSTIPATION
     Route: 054
  16. COREG [Concomitant]
     Active Substance: CARVEDILOL
     Route: 048
  17. DIMETICONE [Concomitant]
     Active Substance: DIMETHICONE
     Dosage: APPLY TO REDDENED/EXORIATAED AREA AS NEEDED, DISCONTINUE WHEN HEALED
     Route: 061
  18. IMDUR [Concomitant]
     Active Substance: ISOSORBIDE MONONITRATE
     Route: 048
     Dates: end: 20170926
  19. NITROSTAT [Concomitant]
     Active Substance: NITROGLYCERIN
     Indication: CHEST PAIN
     Route: 060
  20. NORCO [Concomitant]
     Active Substance: ACETAMINOPHEN\HYDROCODONE BITARTRATE
     Dosage: 5/325 MG
     Dates: end: 2017
  21. NEPHRO-VITE [Concomitant]
     Route: 048
     Dates: end: 20170926
  22. BENADRYL [Concomitant]
     Active Substance: DIPHENHYDRAMINE HYDROCHLORIDE
     Route: 048
     Dates: end: 20170925
  23. TYLENOL [Concomitant]
     Active Substance: ACETAMINOPHEN
     Indication: PYREXIA
  24. PHOSLO [Concomitant]
     Active Substance: CALCIUM ACETATE
     Dosage: ON TUESDAY, THURSDAY, SATURDAY AND SUNDAY
     Route: 048
     Dates: end: 20170926
  25. COREG [Concomitant]
     Active Substance: CARVEDILOL
     Route: 048
     Dates: end: 20170926
  26. KEPPRA [Concomitant]
     Active Substance: LEVETIRACETAM
     Route: 048
     Dates: end: 20170926
  27. COLECALCIFEROL [Concomitant]
     Active Substance: CHOLECALCIFEROL
     Route: 048
     Dates: end: 20170926
  28. FENOFIBRATE. [Concomitant]
     Active Substance: FENOFIBRATE
     Route: 048
     Dates: end: 20170926
  29. PROSCAR [Concomitant]
     Active Substance: FINASTERIDE
     Route: 048
     Dates: end: 20170926

REACTIONS (7)
  - Off label use [Unknown]
  - Atelectasis [Unknown]
  - Pneumonia [Unknown]
  - Therapy cessation [Fatal]
  - Subdural haematoma [Unknown]
  - Pleural effusion [Unknown]
  - Fall [Unknown]

NARRATIVE: CASE EVENT DATE: 2017
